FAERS Safety Report 10161882 (Version 1)
Quarter: 2014Q2

REPORT INFORMATION
  Report Type: Spontaneous
  Country: US (occurrence: None)
  Receive Date: 20140507
  Receipt Date: 20140507
  Transmission Date: 20141212
  Serious: Yes (Other)
  Sender: FDA-Public Use
  Company Number: 2014AP002729

PATIENT
  Age: 55 Year
  Sex: Male

DRUGS (2)
  1. ANASTROZOLE [Suspect]
     Indication: CARDIOVASCULAR DISORDER
     Dosage: 1 MG, QD, UNKNOWN
  2. ANDROGEL [Suspect]
     Indication: MALE SEXUAL DYSFUNCTION
     Dosage: 50 MG, QD, OTHER
     Route: 050

REACTIONS (4)
  - Osteonecrosis of jaw [None]
  - Thrombosis [None]
  - Oestradiol increased [None]
  - Blood testosterone decreased [None]
